FAERS Safety Report 9134848 (Version 1)
Quarter: 2013Q1

REPORT INFORMATION
  Report Type: Spontaneous
  Country: US (occurrence: US)
  Receive Date: 20130304
  Receipt Date: 20130304
  Transmission Date: 20140127
  Serious: Yes (Other)
  Sender: FDA-Public Use
  Company Number: US-COVIDIEN/TYCO HEALTHCARE/MALLINCKRODT-T201300975

PATIENT
  Age: 88 Year
  Sex: Male

DRUGS (1)
  1. TRAMADOL [Suspect]
     Indication: PRODUCT USED FOR UNKNOWN INDICATION
     Dosage: UNK

REACTIONS (5)
  - Psychotic disorder [Unknown]
  - Delusion [Unknown]
  - Speech disorder [Unknown]
  - Crying [Unknown]
  - Restlessness [Unknown]
